FAERS Safety Report 9781173 (Version 3)
Quarter: 2014Q1

REPORT INFORMATION
  Report Type: Spontaneous
  Country: FR (occurrence: FR)
  Receive Date: 20131224
  Receipt Date: 20140122
  Transmission Date: 20141002
  Serious: Yes (Other)
  Sender: FDA-Public Use
  Company Number: FR-UCBSA-106136

PATIENT
  Age: 15 Year
  Sex: Female

DRUGS (4)
  1. VIMPAT [Suspect]
     Dosage: PROGRESSIVE DOSE INCREASE
     Route: 048
     Dates: start: 201308, end: 2013
  2. VIMPAT [Suspect]
     Route: 048
     Dates: start: 2013
  3. TEGRETOL [Concomitant]
  4. LAMICTAL [Concomitant]
     Route: 048

REACTIONS (1)
  - Lymphoma [Not Recovered/Not Resolved]
